FAERS Safety Report 24739666 (Version 1)
Quarter: 2024Q4

REPORT INFORMATION
  Report Type: Spontaneous
  Country: US (occurrence: US)
  Receive Date: 20241216
  Receipt Date: 20241216
  Transmission Date: 20250115
  Serious: Yes (Other)
  Sender: ABBVIE
  Company Number: US-ABBVIE-6038827

PATIENT
  Age: 63 Year

DRUGS (1)
  1. HUMIRA [Suspect]
     Active Substance: ADALIMUMAB
     Indication: Rheumatoid arthritis
     Route: 058
     Dates: start: 2004, end: 202401

REACTIONS (13)
  - Cataract [Unknown]
  - Food allergy [Unknown]
  - Musculoskeletal disorder [Unknown]
  - Corneal transplant [Unknown]
  - Anaphylactic reaction [Unknown]
  - Psoriatic arthropathy [Unknown]
  - Crohn^s disease [Unknown]
  - Scar [Unknown]
  - Drug ineffective [Unknown]
  - Corneal graft rejection [Unknown]
  - Allergy to fermented products [Unknown]
  - Drug specific antibody [Unknown]
  - Dermatitis allergic [Unknown]

NARRATIVE: CASE EVENT DATE: 20240101
